FAERS Safety Report 7343548-2 (Version None)
Quarter: 2011Q1

REPORT INFORMATION
  Report Type: 
  Country: None (occurrence: None)
  Receive Date: 20110310
  Receipt Date: 20100504
  Transmission Date: 20110831
  Serious: No
  Sender: FDA-Public Use
  Company Number: A0857861A

PATIENT
  Age: 66 Year
  Sex: Female

DRUGS (2)
  1. NICORETTE [Suspect]
  2. NICORETTE [Suspect]

REACTIONS (3)
  - DRUG ADMINISTRATION ERROR [None]
  - STOMATITIS [None]
  - EXPIRED DRUG ADMINISTERED [None]
